FAERS Safety Report 7171124-3 (Version None)
Quarter: 2010Q4

REPORT INFORMATION
  Report Type: 
  Country: None (occurrence: None)
  Receive Date: 20101217
  Receipt Date: 20101207
  Transmission Date: 20110411
  Serious: Yes (Other)
  Sender: FDA-Public Use
  Company Number: PHHY2010JP68408

PATIENT
  Age: 67 Year
  Sex: Male

DRUGS (2)
  1. STARSIS [Suspect]
     Indication: TYPE 2 DIABETES MELLITUS
     Dosage: 270 MG
     Route: 048
     Dates: start: 20090822, end: 20100705
  2. METFORMIN HYDROCHLORIDE [Concomitant]
     Dosage: 750 MG
     Dates: start: 20100425, end: 20100705

REACTIONS (9)
  - ALANINE AMINOTRANSFERASE INCREASED [None]
  - BILE DUCT CANCER [None]
  - BLOOD ALKALINE PHOSPHATASE INCREASED [None]
  - BLOOD BILIRUBIN INCREASED [None]
  - BLOOD GLUCOSE INCREASED [None]
  - CHOLEDOCHECTOMY [None]
  - GAMMA-GLUTAMYLTRANSFERASE INCREASED [None]
  - JAUNDICE [None]
  - MASS [None]
